FAERS Safety Report 6239451-1 (Version None)
Quarter: 2009Q2

REPORT INFORMATION
  Report Type: 
  Country: None (occurrence: None)
  Receive Date: 20090618
  Receipt Date: 20090618
  Transmission Date: 20091009
  Serious: Yes (Other)
  Sender: FDA-Public Use
  Company Number: None

PATIENT
  Age: 31 Year
  Sex: Female
  Weight: 86.1834 kg

DRUGS (2)
  1. ZICAM SPRAY MATRIX [Suspect]
     Indication: NASOPHARYNGITIS
     Dosage: TWO SPRAYS IN BOTH NOSTRILS FOR THREE DAYS INHAL
  2. ZICAM GEL SWABS MATRIX [Suspect]
     Indication: NASOPHARYNGITIS
     Dosage: ONE SWAB USED IN BOTH NOSTRILS FOR ONE DAY INHAL
     Route: 055

REACTIONS (1)
  - HYPOSMIA [None]
